FAERS Safety Report 4472593-X (Version None)
Quarter: 2004Q4

REPORT INFORMATION
  Report Type: 
  Country: None (occurrence: None)
  Receive Date: 20041008
  Receipt Date: 20040927
  Transmission Date: 20050328
  Serious: Yes (Hospitalization)
  Sender: FDA-Public Use
  Company Number: 2004071142

PATIENT
  Age: 52 Year
  Sex: Male
  Weight: 75 kg

DRUGS (6)
  1. VIRACEPT [Suspect]
     Indication: HIV INFECTION
     Dosage: ORAL
     Route: 048
  2. DIDANOSINE [Suspect]
     Indication: HIV INFECTION
     Dosage: ORAL
     Route: 048
  3. LAMIVUDINE (LAMIDUDINE) [Suspect]
     Indication: HIV INFECTION
     Dosage: 300 MG (1 D), ORAL
     Route: 048
     Dates: start: 20030106
  4. STAVUDINE (STAVUDINE) [Suspect]
     Indication: HIV INFECTION
     Dosage: ORAL
     Route: 048
  5. ABACAVIR (AVACAVIR) [Suspect]
     Indication: HIV INFECTION
     Dosage: 600 MG (1 D); ORAL
     Route: 048
     Dates: start: 20030106
  6. KALETRA [Suspect]
     Indication: HIV INFECTION
     Dosage: 800 MG (1 D); ORAL
     Route: 048
     Dates: start: 20030106

REACTIONS (2)
  - NEURITIS [None]
  - VESTIBULAR NEURONITIS [None]
